FAERS Safety Report 10885948 (Version 1)
Quarter: 2015Q1

REPORT INFORMATION
  Report Type: Spontaneous
  Country: GB (occurrence: None)
  Receive Date: 20150302
  Receipt Date: 20150302
  Transmission Date: 20150721
  Serious: Yes (Other)
  Sender: FDA-Public Use
  Company Number: 2015067237

PATIENT
  Age: 26 Year
  Sex: Female

DRUGS (1)
  1. FRAGMIN [Suspect]
     Active Substance: DALTEPARIN SODIUM
     Indication: THROMBOSIS PROPHYLAXIS
     Dosage: ONE 5000 UNIT PRE-FILLED SYRINGE DAILY, SUBCUTANEOUS?
     Route: 058
     Dates: start: 20150203, end: 20150203

REACTIONS (3)
  - Hypoaesthesia [None]
  - Injection site pain [None]
  - Injection site vesicles [None]

NARRATIVE: CASE EVENT DATE: 20150203
